FAERS Safety Report 10077366 (Version 2)
Quarter: 2014Q2

REPORT INFORMATION
  Report Type: Spontaneous
  Country: US (occurrence: US)
  Receive Date: 20140414
  Receipt Date: 20140507
  Transmission Date: 20141212
  Serious: No
  Sender: FDA-Public Use
  Company Number: US-009507513-1404USA005474

PATIENT
  Age: 19 Year
  Sex: Female
  Weight: 74.38 kg

DRUGS (1)
  1. NEXPLANON [Suspect]
     Indication: CONTRACEPTION
     Dosage: 1 ROD, UNK
     Route: 059
     Dates: start: 20130809, end: 20140418

REACTIONS (2)
  - Device kink [Recovered/Resolved]
  - Pain in extremity [Recovered/Resolved]
